FAERS Safety Report 7194670-5 (Version None)
Quarter: 2010Q4

REPORT INFORMATION
  Report Type: 
  Country: None (occurrence: None)
  Receive Date: 20101223
  Receipt Date: 20101217
  Transmission Date: 20110411
  Serious: Yes (Hospitalization)
  Sender: FDA-Public Use
  Company Number: US-WATSON-2010-16137

PATIENT
  Sex: Female
  Weight: 90.7 kg

DRUGS (5)
  1. FENTANYL-25 [Suspect]
     Indication: NEURALGIA
     Dosage: 1 PATCH Q48H
     Route: 062
     Dates: start: 20100901, end: 20100926
  2. FENTANYL-25 [Suspect]
     Dosage: 1 PATCH Q72H
     Route: 062
     Dates: start: 20090201, end: 20100801
  3. FENTANYL-75 [Suspect]
     Indication: ACCIDENTAL EXPOSURE
     Dosage: 1 PATCH, SINGLE
     Route: 062
     Dates: start: 20100926
  4. XANAX [Concomitant]
     Indication: PRODUCT USED FOR UNKNOWN INDICATION
     Dosage: UNK
  5. EDULAR [Concomitant]
     Indication: INSOMNIA
     Dosage: UNK

REACTIONS (14)
  - AGGRESSION [None]
  - AMNESIA [None]
  - ASTHENIA [None]
  - BLOOD PRESSURE FLUCTUATION [None]
  - DYSARTHRIA [None]
  - DYSGEUSIA [None]
  - FEELING ABNORMAL [None]
  - HEART RATE DECREASED [None]
  - HYPOAESTHESIA [None]
  - IMPAIRED SELF-CARE [None]
  - MENTAL IMPAIRMENT [None]
  - PARAMNESIA [None]
  - PSYCHOTIC DISORDER [None]
  - REPETITIVE SPEECH [None]
